FAERS Safety Report 13497391 (Version 2)
Quarter: 2017Q2

REPORT INFORMATION
  Report Type: Report from Study
  Country: FR (occurrence: FR)
  Receive Date: 20170428
  Receipt Date: 20170504
  Transmission Date: 20170830
  Serious: Yes (Death, Hospitalization)
  Sender: FDA-Public Use
  Company Number: FR-CELGENEUS-FRA-2016095409

PATIENT
  Age: 82 Year
  Sex: Male
  Weight: 77.7 kg

DRUGS (14)
  1. LEVOTHYROX [Concomitant]
     Active Substance: LEVOTHYROXINE
     Indication: BLOOD THYROID STIMULATING HORMONE INCREASED
     Dosage: 75 MILLIGRAM
     Route: 048
     Dates: start: 20160923
  2. REPAGLINIDE. [Concomitant]
     Active Substance: REPAGLINIDE
     Route: 065
  3. SODIUM BICARBONATE. [Concomitant]
     Active Substance: SODIUM BICARBONATE
     Indication: PRODUCT USED FOR UNKNOWN INDICATION
     Route: 065
     Dates: start: 20160926
  4. MOVICOL [Concomitant]
     Active Substance: POLYETHYLENE GLYCOL 3350\POTASSIUM CHLORIDE\SODIUM BICARBONATE\SODIUM CHLORIDE
     Indication: PRODUCT USED FOR UNKNOWN INDICATION
     Route: 048
     Dates: start: 20160921
  5. KARDEGIC [Concomitant]
     Active Substance: ASPIRIN LYSINE
     Indication: ARTERITIS
     Dosage: 75 MILLIGRAM
     Route: 048
     Dates: start: 20141119, end: 20160818
  6. NOXAFIL [Concomitant]
     Active Substance: POSACONAZOLE
     Indication: PRODUCT USED FOR UNKNOWN INDICATION
     Dosage: 300 MILLIGRAM
     Route: 065
     Dates: start: 20160923
  7. ZOPHREN [Concomitant]
     Active Substance: ONDANSETRON
     Indication: NAUSEA
     Dosage: 1 TABLESPOON
     Route: 065
     Dates: start: 20160921
  8. AZACITIDINE INJECTABLE [Suspect]
     Active Substance: AZACITIDINE
     Route: 058
     Dates: start: 20160913, end: 20160919
  9. AZACITIDINE INJECTABLE [Suspect]
     Active Substance: AZACITIDINE
     Indication: MYELODYSPLASTIC SYNDROME
     Route: 058
     Dates: start: 20160908, end: 20160909
  10. JANUVIA [Concomitant]
     Active Substance: SITAGLIPTIN PHOSPHATE
     Indication: PRODUCT USED FOR UNKNOWN INDICATION
     Dosage: 100 MILLIGRAM
     Route: 065
     Dates: start: 20160921
  11. ZOPHREN [Concomitant]
     Active Substance: ONDANSETRON
     Indication: VOMITING
  12. DOLIPRANE [Concomitant]
     Active Substance: ACETAMINOPHEN
     Indication: PRODUCT USED FOR UNKNOWN INDICATION
     Dosage: 400 MILLIGRAM
     Route: 065
     Dates: start: 20160921
  13. IDARUBICIN [Suspect]
     Active Substance: IDARUBICIN
     Indication: MYELODYSPLASTIC SYNDROME
     Route: 041
     Dates: start: 20160920, end: 20160920
  14. REPAGLINIDE. [Concomitant]
     Active Substance: REPAGLINIDE
     Indication: PRODUCT USED FOR UNKNOWN INDICATION
     Dosage: .5 MILLIGRAM
     Route: 065
     Dates: start: 20160921

REACTIONS (3)
  - General physical health deterioration [Fatal]
  - Febrile bone marrow aplasia [Fatal]
  - Pyrexia [Recovered/Resolved]

NARRATIVE: CASE EVENT DATE: 20160908
